FAERS Safety Report 16185329 (Version 1)
Quarter: 2019Q2

REPORT INFORMATION
  Report Type: Not Available
  Country: US (occurrence: US)
  Receive Date: 20190411
  Receipt Date: 20190411
  Transmission Date: 20190711
  Serious: No
  Sender: FDA-Public Use
  Company Number: US-NEUROCRINE BIOSCIENCES INC.-2019NBI00849

PATIENT
  Sex: Female

DRUGS (16)
  1. TRIHEXPHYNIDYL [Concomitant]
  2. AMANTADINE. [Concomitant]
     Active Substance: AMANTADINE HYDROCHLORIDE
  3. MONTELUKAST [Concomitant]
     Active Substance: MONTELUKAST SODIUM
  4. FUROSEMIDE. [Concomitant]
     Active Substance: FUROSEMIDE
  5. FENOFIBRATE. [Concomitant]
     Active Substance: FENOFIBRATE
  6. DOCUSATE [Concomitant]
     Active Substance: DOCUSATE
  7. IRON [Concomitant]
     Active Substance: IRON
  8. FLUPHENAZINE [Concomitant]
     Active Substance: FLUPHENAZINE
  9. CARVEDILOL. [Concomitant]
     Active Substance: CARVEDILOL
  10. CLONAZEPAM. [Concomitant]
     Active Substance: CLONAZEPAM
  11. BUPROPION. [Concomitant]
     Active Substance: BUPROPION
  12. INGREZZA [Suspect]
     Active Substance: VALBENAZINE
     Indication: PRODUCT USED FOR UNKNOWN INDICATION
     Route: 048
  13. VENLAFAXINE [Concomitant]
     Active Substance: VENLAFAXINE HYDROCHLORIDE
  14. TIZANIDINE. [Concomitant]
     Active Substance: TIZANIDINE
  15. METFORMIN [Concomitant]
     Active Substance: METFORMIN HYDROCHLORIDE
  16. LEVOTHYROXINE. [Concomitant]
     Active Substance: LEVOTHYROXINE

REACTIONS (1)
  - Somnolence [Not Recovered/Not Resolved]
